FAERS Safety Report 23517398 (Version 7)
Quarter: 2024Q2

REPORT INFORMATION
  Report Type: Spontaneous
  Country: US (occurrence: US)
  Receive Date: 20240213
  Receipt Date: 20240429
  Transmission Date: 20240716
  Serious: No
  Sender: FDA-Public Use
  Company Number: US-PFIZER INC-PV202400011981

PATIENT
  Age: 15 Year
  Sex: Male

DRUGS (1)
  1. GENOTROPIN [Suspect]
     Active Substance: SOMATROPIN
     Indication: Growth hormone deficiency
     Dosage: BETWEEN 2.4 AND 2.6
     Dates: start: 2021

REACTIONS (5)
  - Expired device used [Unknown]
  - Drug dose omission by device [Unknown]
  - Product prescribing error [Unknown]
  - Device use issue [Unknown]
  - Device breakage [Unknown]
